FAERS Safety Report 5276261-6 (Version None)
Quarter: 2007Q1

REPORT INFORMATION
  Report Type: 
  Country: None (occurrence: None)
  Receive Date: 20070326
  Receipt Date: 20070315
  Transmission Date: 20070707
  Serious: Yes (Death, Other)
  Sender: FDA-Public Use
  Company Number: US-PFIZER INC-2005129227

PATIENT
  Sex: Male

DRUGS (10)
  1. NEURONTIN [Suspect]
     Indication: ATTENTION DEFICIT/HYPERACTIVITY DISORDER
     Dates: start: 20011001, end: 20030401
  2. NEURONTIN [Suspect]
     Indication: MIGRAINE
  3. NEURONTIN [Suspect]
     Indication: BIPOLAR DISORDER
  4. NEURONTIN [Suspect]
     Indication: PAIN
  5. PAXIL [Suspect]
     Route: 048
  6. AMMONIA [Suspect]
  7. ALCOHOL [Suspect]
  8. LAMICTAL [Concomitant]
     Dosage: TEXT:UNKNOWN-FREQ:UNKNOWN
     Route: 065
  9. TRILEPTAL [Concomitant]
     Route: 065
  10. LEXAPRO [Concomitant]
     Route: 065

REACTIONS (6)
  - COMPLETED SUICIDE [None]
  - DRUG INEFFECTIVE [None]
  - INJURY ASPHYXIATION [None]
  - MULTIPLE DRUG OVERDOSE [None]
  - RESPIRATORY ARREST [None]
  - SUICIDAL IDEATION [None]
